FAERS Safety Report 4460056-7 (Version None)
Quarter: 2004Q3

REPORT INFORMATION
  Report Type: 
  Country: None (occurrence: None)
  Receive Date: 20040928
  Receipt Date: 20031003
  Transmission Date: 20050211
  Serious: No
  Sender: FDA-Public Use
  Company Number: US-GLAXOSMITHKLINE-A0428713A

PATIENT
  Age: 80 Year
  Sex: Female

DRUGS (1)
  1. SEREVENT [Suspect]
     Indication: ASTHMA
     Dosage: 50MCG UNKNOWN
     Route: 055
     Dates: start: 20030925

REACTIONS (1)
  - HYPERTENSION [None]
